FAERS Safety Report 8190528-3 (Version None)
Quarter: 2012Q1

REPORT INFORMATION
  Report Type: 
  Country: None (occurrence: None)
  Receive Date: 20120307
  Receipt Date: 20120224
  Transmission Date: 20120608
  Serious: Yes (Other)
  Sender: FDA-Public Use
  Company Number: GB-FRI-1000028834

PATIENT
  Age: 15 Year
  Sex: Female

DRUGS (2)
  1. CITALOPRAM HYDROBROMIDE [Suspect]
     Dosage: 20 MG
     Route: 048
     Dates: start: 20120105
  2. CITALOPRAM HYDROBROMIDE [Suspect]
     Indication: MAJOR DEPRESSION
     Dosage: 30 MG
     Route: 048
     Dates: start: 20111111, end: 20120105

REACTIONS (3)
  - ELECTROCARDIOGRAM ABNORMAL [None]
  - OFF LABEL USE [None]
  - ELECTROCARDIOGRAM QT PROLONGED [None]
